FAERS Safety Report 10534494 (Version 1)
Quarter: 2014Q4

REPORT INFORMATION
  Report Type: Spontaneous
  Country: US (occurrence: None)
  Receive Date: 20141021
  Receipt Date: 20141021
  Transmission Date: 20150529
  Serious: No
  Sender: FDA-Public Use
  Company Number: None

PATIENT
  Sex: Female

DRUGS (1)
  1. MIRALAX [Suspect]
     Active Substance: POLYETHYLENE GLYCOL 3350
     Indication: CONSTIPATION
     Dosage: MIX 17G WITH 8OZ WATER TWICE A DAY
     Dates: start: 20130523

REACTIONS (8)
  - Product substitution issue [None]
  - Hypothyroidism [None]
  - Drug ineffective [None]
  - Cerebral palsy [None]
  - Epilepsy [None]
  - Neuritis [None]
  - Radiculitis [None]
  - Pancreatitis acute [None]
